FAERS Safety Report 13289763 (Version 1)
Quarter: 2017Q1

REPORT INFORMATION
  Report Type: Spontaneous
  Country: US (occurrence: US)
  Receive Date: 20170302
  Receipt Date: 20170302
  Transmission Date: 20170428
  Serious: Yes (Disabling, Other)
  Sender: FDA-Public Use
  Company Number: US-DEPOMED, INC.-US-2016DEP012259

PATIENT

DRUGS (2)
  1. GRALISE [Suspect]
     Active Substance: GABAPENTIN
     Indication: TRIGEMINAL NEURALGIA
     Dosage: 1800 MG, QD, WITH FOOD
     Route: 048
     Dates: start: 20160504, end: 2016
  2. GRALISE [Suspect]
     Active Substance: GABAPENTIN
     Dosage: UNK
     Dates: start: 2016

REACTIONS (4)
  - Depression [Recovered/Resolved]
  - Product use issue [Not Recovered/Not Resolved]
  - Dizziness [Recovered/Resolved]
  - Somnolence [Recovered/Resolved]

NARRATIVE: CASE EVENT DATE: 2016
